FAERS Safety Report 22610594 (Version 1)
Quarter: 2023Q2

REPORT INFORMATION
  Report Type: Spontaneous
  Country: US (occurrence: None)
  Receive Date: 20230615
  Receipt Date: 20230615
  Transmission Date: 20230722
  Serious: No
  Sender: FDA-Public Use
  Company Number: None

PATIENT
  Age: 65 Year
  Sex: Female
  Weight: 65.32 kg

DRUGS (15)
  1. VERZENIO [Suspect]
     Active Substance: ABEMACICLIB
     Indication: Breast cancer female
     Dosage: FREQUENCY : TWICE A DAY;?
     Route: 048
     Dates: start: 20221201
  2. ALOE VERA [Concomitant]
  3. ANASTROZOLE [Concomitant]
     Active Substance: ANASTROZOLE
  4. BIOTE [Concomitant]
  5. CALCIUM-VITAMIN D3 [Concomitant]
  6. CETIRIZINE [Concomitant]
     Active Substance: CETIRIZINE HYDROCHLORIDE
  7. GINKGO BILOBA [Concomitant]
  8. HERBALS [Concomitant]
     Active Substance: HERBALS
  9. LISINOPRIL [Concomitant]
     Active Substance: LISINOPRIL
  10. MOMETASONE [Concomitant]
     Active Substance: MOMETASONE
  11. VITAMINS [Concomitant]
     Active Substance: VITAMINS
  12. NP THYROID [Concomitant]
  13. OMEGA 3 [Concomitant]
     Active Substance: CAPSAICIN
  14. PRIOBIOTIC ACIDOPHILUS [Concomitant]
  15. VITAMIN D [Concomitant]

REACTIONS (2)
  - Feeling cold [None]
  - Palpitations [None]
